FAERS Safety Report 14027985 (Version 1)
Quarter: 2017Q3

REPORT INFORMATION
  Report Type: Spontaneous
  Country: US (occurrence: None)
  Receive Date: 20170929
  Receipt Date: 20170929
  Transmission Date: 20171128
  Serious: Yes (Hospitalization)
  Sender: FDA-Public Use
  Company Number: None

PATIENT
  Sex: Male

DRUGS (20)
  1. OXYCODONE [Concomitant]
     Active Substance: OXYCODONE
  2. MIRALAX [Concomitant]
     Active Substance: POLYETHYLENE GLYCOL 3350
  3. OCTREOTIDE. [Concomitant]
     Active Substance: OCTREOTIDE
  4. OXYCONTIN [Concomitant]
     Active Substance: OXYCODONE HYDROCHLORIDE
  5. VITAMIN C [Concomitant]
     Active Substance: ASCORBIC ACID
  6. VITAMIN D [Concomitant]
     Active Substance: CHOLECALCIFEROL
  7. EXJADE [Suspect]
     Active Substance: DEFERASIROX
     Indication: HAEMOCHROMATOSIS
     Route: 048
     Dates: start: 20170831, end: 201708
  8. PREDNISONE. [Concomitant]
     Active Substance: PREDNISONE
  9. TYLENOL [Concomitant]
     Active Substance: ACETAMINOPHEN
  10. NYSTATIN. [Concomitant]
     Active Substance: NYSTATIN
  11. MULTIVITAMIN [Concomitant]
     Active Substance: VITAMINS
  12. NITROFURANTIN [Concomitant]
     Active Substance: NITROFURANTOIN
  13. PROMACTA [Concomitant]
     Active Substance: ELTROMBOPAG OLAMINE
  14. CALCIUM [Concomitant]
     Active Substance: CALCIUM
  15. MEGESTROL [Concomitant]
     Active Substance: MEGESTROL
  16. NEXIUM [Concomitant]
     Active Substance: ESOMEPRAZOLE MAGNESIUM
  17. FIBERCON [Concomitant]
     Active Substance: CALCIUM POLYCARBOPHIL
  18. LEVOFLOXACIN. [Concomitant]
     Active Substance: LEVOFLOXACIN
  19. ONDANSETRON [Concomitant]
     Active Substance: ONDANSETRON
  20. OXYBUTYNIN [Concomitant]
     Active Substance: OXYBUTYNIN

REACTIONS (1)
  - Hospitalisation [None]

NARRATIVE: CASE EVENT DATE: 2017
